FAERS Safety Report 7580363-9 (Version None)
Quarter: 2011Q2

REPORT INFORMATION
  Report Type: 
  Country: None (occurrence: None)
  Receive Date: 20110622
  Receipt Date: 20110607
  Transmission Date: 20111010
  Serious: Yes (Hospitalization, Other)
  Sender: FDA-Public Use
  Company Number: 2011EG0142

PATIENT

DRUGS (1)
  1. NITISIONONE (NITISINONE) [Suspect]
     Indication: TYROSINAEMIA
     Dosage: 0.55 MG/KG (0.55 MG/KG,1 IN 1 D)

REACTIONS (3)
  - HEPATIC CIRRHOSIS [None]
  - HEPATIC NEOPLASM [None]
  - LIVER TRANSPLANT [None]
